FAERS Safety Report 13410979 (Version 3)
Quarter: 2022Q4

REPORT INFORMATION
  Report Type: Spontaneous
  Country: US (occurrence: US)
  Receive Date: 20170406
  Receipt Date: 20221221
  Transmission Date: 20230113
  Serious: No
  Sender: FDA-Public Use
  Company Number: US-JNJFOC-20170303447

PATIENT
  Age: 15 Year
  Sex: Male

DRUGS (6)
  1. RISPERDAL [Suspect]
     Active Substance: RISPERIDONE
     Indication: Chorea
     Dosage: IN VARYING DOSES OF 0.25 MG AND 1 MG
     Route: 048
     Dates: start: 20051228, end: 20120319
  2. RISPERDAL [Suspect]
     Active Substance: RISPERIDONE
     Indication: Dystonia
     Route: 048
     Dates: start: 2012, end: 20120424
  3. RISPERIDONE [Suspect]
     Active Substance: RISPERIDONE
     Indication: Dystonia
     Route: 048
     Dates: start: 20100317, end: 20120424
  4. RISPERIDONE [Suspect]
     Active Substance: RISPERIDONE
     Indication: Chorea
  5. RISPERIDONE [Suspect]
     Active Substance: RISPERIDONE
     Indication: Dystonia
     Route: 048
     Dates: start: 20080805, end: 20091231
  6. RISPERIDONE [Suspect]
     Active Substance: RISPERIDONE
     Indication: Chorea

REACTIONS (5)
  - Emotional disorder [Unknown]
  - Gynaecomastia [Unknown]
  - Weight increased [Unknown]
  - Off label use [Unknown]
  - Product use in unapproved indication [Unknown]

NARRATIVE: CASE EVENT DATE: 20051228
